FAERS Safety Report 20866039 (Version 1)
Quarter: 2022Q2

REPORT INFORMATION
  Report Type: Spontaneous
  Country: US (occurrence: None)
  Receive Date: 20220523
  Receipt Date: 20220523
  Transmission Date: 20220721
  Serious: Yes (Disabling)
  Sender: FDA-Public Use
  Company Number: None

PATIENT
  Age: 34 Year
  Weight: 76.05 kg

DRUGS (1)
  1. SUNOSI [Suspect]
     Active Substance: SOLRIAMFETOL
     Indication: Somnolence
     Dosage: OTHER QUANTITY : 1 TABLET(S);?FREQUENCY : DAILY;?
     Dates: start: 20220519, end: 20220523

REACTIONS (5)
  - Depression [None]
  - Gastrointestinal disorder [None]
  - Dizziness [None]
  - Listless [None]
  - Asthenia [None]

NARRATIVE: CASE EVENT DATE: 20220521
